FAERS Safety Report 5409621-0 (Version None)
Quarter: 2007Q3

REPORT INFORMATION
  Report Type: 
  Country: None (occurrence: None)
  Receive Date: 20070807
  Receipt Date: 20070807
  Transmission Date: 20080115
  Serious: Yes (Hospitalization)
  Sender: FDA-Public Use
  Company Number: None

PATIENT
  Age: 74 Year
  Sex: Male

DRUGS (16)
  1. RANOLAZINE [Suspect]
     Dosage: 500 MG BID PO
     Route: 048
     Dates: start: 20060606, end: 20060619
  2. METOPROLOL SUCCINATE [Suspect]
     Dosage: METOPROLOL 25MG BID PO
     Route: 048
  3. RANEXA [Concomitant]
  4. AVELOX [Concomitant]
  5. QUINAPRIL HCL [Concomitant]
  6. ALLOPURINOL [Concomitant]
  7. COREG [Concomitant]
  8. POTASSIUM CHLORIDE [Concomitant]
  9. INSULIN [Concomitant]
  10. COUMADIN [Concomitant]
  11. LESCOL [Concomitant]
  12. NITROGLYCERIN [Concomitant]
  13. LASIX [Concomitant]
  14. INSPRA [Concomitant]
  15. SLOW-MAGNESIUM [Concomitant]
  16. METOLAZONE [Concomitant]

REACTIONS (3)
  - DIZZINESS [None]
  - HYPOVOLAEMIA [None]
  - SYNCOPE [None]
